FAERS Safety Report 17995685 (Version 1)
Quarter: 2020Q3

REPORT INFORMATION
  Report Type: Spontaneous
  Country: US (occurrence: US)
  Receive Date: 20200708
  Receipt Date: 20200708
  Transmission Date: 20201103
  Serious: No
  Sender: FDA-Public Use
  Company Number: US-ENDO PHARMACEUTICALS INC-2019-107776

PATIENT
  Sex: Female
  Weight: 48.98 kg

DRUGS (5)
  1. OPANA [Suspect]
     Active Substance: OXYMORPHONE HYDROCHLORIDE
     Indication: OSTEOARTHRITIS
  2. OPANA [Suspect]
     Active Substance: OXYMORPHONE HYDROCHLORIDE
     Indication: EXOSTOSIS
  3. GABAPENTIN. [Concomitant]
     Active Substance: GABAPENTIN
     Indication: MIGRAINE
  4. OPANA [Suspect]
     Active Substance: OXYMORPHONE HYDROCHLORIDE
     Indication: OSTEOARTHRITIS
     Dosage: UNK UNKNOWN, 1/2 TO ONE TABLET BID
     Dates: start: 2011
  5. NEUROTIN                           /00949202/ [Concomitant]
     Active Substance: LEVACECARNINE HYDROCHLORIDE
     Indication: NEURALGIA

REACTIONS (1)
  - Drug ineffective [Unknown]
